FAERS Safety Report 9506350 (Version 1)
Quarter: 2013Q1

REPORT INFORMATION
  Report Type: Spontaneous
  Country: US (occurrence: None)
  Receive Date: 20130301
  Receipt Date: 20130301
  Transmission Date: 20140127
  Serious: Yes (Other)
  Sender: FDA-Public Use
  Company Number: US-JNJFOC-20050506906

PATIENT
  Age: 59 Year
  Sex: Female

DRUGS (3)
  1. IBUPROFEN [Suspect]
     Indication: PRODUCT USED FOR UNKNOWN INDICATION
  2. ZANTAC [Suspect]
     Indication: DYSPEPSIA
     Dates: start: 20050502, end: 20050517
  3. LORTAB [Suspect]
     Indication: PAIN
     Dosage: , 1 IN 1 DAY, UNKNOWN
     Dates: start: 20050512

REACTIONS (3)
  - Swollen tongue [None]
  - Hypersensitivity [None]
  - Dyspnoea [None]
